FAERS Safety Report 13862754 (Version 1)
Quarter: 2017Q3

REPORT INFORMATION
  Report Type: Spontaneous
  Country: GB (occurrence: GB)
  Receive Date: 20170814
  Receipt Date: 20170814
  Transmission Date: 20171127
  Serious: Yes (Other)
  Sender: FDA-Public Use
  Company Number: GB-BRISTOL-MYERS SQUIBB COMPANY-BMS-2017-069511

PATIENT
  Age: 50 Year
  Sex: Female
  Weight: 63.2 kg

DRUGS (5)
  1. RITONAVIR. [Suspect]
     Active Substance: RITONAVIR
     Indication: HIV TEST POSITIVE
     Route: 065
  2. EVOTAZ [Suspect]
     Active Substance: ATAZANAVIR SULFATE\COBICISTAT
     Indication: HIV TEST POSITIVE
     Route: 048
     Dates: start: 20170720, end: 20170722
  3. TRUVADA [Suspect]
     Active Substance: EMTRICITABINE\TENOFOVIR DISOPROXIL FUMARATE
     Indication: HIV TEST POSITIVE
     Route: 065
  4. REZOLSTA [Suspect]
     Active Substance: COBICISTAT\DARUNAVIR ETHANOLATE
     Indication: HIV TEST POSITIVE
     Route: 048
     Dates: start: 20170707, end: 20170719
  5. ATAZANAVIR [Suspect]
     Active Substance: ATAZANAVIR
     Indication: HIV TEST POSITIVE
     Route: 065

REACTIONS (9)
  - Mucosal ulceration [Recovering/Resolving]
  - Swelling face [Unknown]
  - Mouth swelling [Unknown]
  - Skin discolouration [Unknown]
  - Rash maculo-papular [Recovering/Resolving]
  - Lip swelling [Unknown]
  - Pruritus [Unknown]
  - Tongue ulceration [Unknown]
  - Hypersensitivity [Unknown]

NARRATIVE: CASE EVENT DATE: 20170718
